FAERS Safety Report 8762833 (Version 1)
Quarter: 2012Q4

REPORT INFORMATION
  Report Type: 
  Country: DE (occurrence: DE)
  Receive Date: 20120828
  Receipt Date: 20120828
  Transmission Date: 20130627
  Serious: Yes (Hospitalization)
  Sender: FDA-Public Use
  Company Number: DE-PFIZER INC-2012205872

PATIENT
  Sex: Female
  Weight: 68 kg

DRUGS (13)
  1. SOMATROPIN [Suspect]
     Dosage: 0.4 mg, 7/wk
     Route: 058
     Dates: start: 20040928
  2. DESMOPRESSIN [Concomitant]
     Indication: BLOOD ANTIDIURETIC HORMONE DECREASED
     Dosage: UNK
     Dates: start: 19990701
  3. HYDROCORTISONE [Concomitant]
     Indication: BLOOD CORTICOTROPHIN DECREASED
     Dosage: UNK
     Dates: start: 19990701
  4. ESTRADIOL [Concomitant]
     Indication: BLOOD LUTEINISING HORMONE DECREASED
     Dosage: UNK
     Dates: start: 19990701
  5. ESTRADIOL [Concomitant]
     Indication: BLOOD FOLLICLE STIMULATING HORMONE DECREASED
  6. ESTRADIOL [Concomitant]
     Indication: HYPOGONADISM FEMALE
  7. LEVOTHYROXINE [Concomitant]
     Indication: BLOOD THYROID STIMULATING HORMONE DECREASED
     Dosage: UNK
     Dates: start: 19990701
  8. LEVOTHYROXINE [Concomitant]
     Indication: PRIMARY HYPOTHYROIDISM
  9. OSSOFORTIN FORTE [Concomitant]
     Indication: BONE DISORDER
     Dosage: UNK
     Dates: start: 20000701
  10. OSSOFORTIN FORTE [Concomitant]
     Indication: CHONDROPATHY
  11. FLUDROCORTISONE [Concomitant]
     Indication: PITUITARY TUMOUR BENIGN
     Dosage: UNK
     Dates: start: 20000701
  12. FOSAMAX [Concomitant]
     Dosage: UNK
     Dates: start: 20041117
  13. ASS 100 [Concomitant]
     Indication: HYPERTENSION
     Dosage: UNK
     Dates: start: 20050426

REACTIONS (1)
  - Foot fracture [Unknown]
